FAERS Safety Report 18207353 (Version 2)
Quarter: 2020Q3

REPORT INFORMATION
  Report Type: Spontaneous
  Country: US (occurrence: US)
  Receive Date: 20200828
  Receipt Date: 20200907
  Transmission Date: 20201103
  Serious: Yes (Hospitalization, Other)
  Sender: FDA-Public Use
  Company Number: US-009507513-2008USA010937

PATIENT
  Age: 59 Year
  Sex: Male
  Weight: 87.6 kg

DRUGS (7)
  1. NOXAFIL [Suspect]
     Active Substance: POSACONAZOLE
     Dosage: UNK
     Route: 048
     Dates: start: 20200726
  2. ITACITINIB [Suspect]
     Active Substance: ITACITINIB
     Dosage: UNK
     Route: 048
     Dates: start: 20200722
  3. PROGRAF [Suspect]
     Active Substance: TACROLIMUS
     Dosage: 1.5 MG IN THE MORNING AND 2 MG IN THE EVENING
     Route: 048
     Dates: start: 20131029, end: 20200707
  4. PROGRAF [Suspect]
     Active Substance: TACROLIMUS
     Dosage: 0.5 MG BID
     Route: 048
     Dates: start: 20200708, end: 20200721
  5. PROGRAF [Suspect]
     Active Substance: TACROLIMUS
     Dosage: UNK
     Route: 048
     Dates: start: 20200724
  6. NOXAFIL [Suspect]
     Active Substance: POSACONAZOLE
     Dosage: UNK
     Route: 048
     Dates: start: 20200708, end: 20200721
  7. ITACITINIB [Suspect]
     Active Substance: ITACITINIB
     Indication: BRONCHIOLITIS OBLITERANS SYNDROME
     Dosage: 400 MILLIGRAM, QD
     Route: 048
     Dates: start: 20200713, end: 20200719

REACTIONS (17)
  - Haematochezia [Unknown]
  - Cough [Unknown]
  - Toxicity to various agents [Recovered/Resolved]
  - Taste disorder [Unknown]
  - Oropharyngeal pain [Unknown]
  - Arthralgia [Unknown]
  - Hypertension [Unknown]
  - Fatigue [Unknown]
  - Headache [Unknown]
  - Chest pain [Unknown]
  - Epicondylitis [Unknown]
  - Dehydration [Unknown]
  - Neck pain [Unknown]
  - Drug interaction [Unknown]
  - Retching [Unknown]
  - Acute kidney injury [Unknown]
  - Chest discomfort [Unknown]

NARRATIVE: CASE EVENT DATE: 202007
